FAERS Safety Report 6419162-X (Version None)
Quarter: 2009Q4

REPORT INFORMATION
  Report Type: 
  Country: None (occurrence: None)
  Receive Date: 20091029
  Receipt Date: 20091022
  Transmission Date: 20100525
  Serious: Yes (Death)
  Sender: FDA-Public Use
  Company Number: US-ROCHE-664360

PATIENT
  Sex: Male
  Weight: 172 kg

DRUGS (1)
  1. CAPECITABINE [Suspect]
     Dosage: STRENGTH: 500; DOSAGE: 2000 MG AM AND 1500 MG PM
     Route: 048
     Dates: start: 20090604, end: 20091016

REACTIONS (1)
  - DEATH [None]
